FAERS Safety Report 4412971-8 (Version None)
Quarter: 2004Q3

REPORT INFORMATION
  Report Type: 
  Country: None (occurrence: None)
  Receive Date: 20040802
  Receipt Date: 20040105
  Transmission Date: 20050211
  Serious: No
  Sender: FDA-Public Use
  Company Number: US-GLAXOSMITHKLINE-A0491359A

PATIENT
  Age: 2 Month
  Sex: Male

DRUGS (2)
  1. ZANTAC [Suspect]
     Indication: ILL-DEFINED DISORDER
     Dosage: .8ML TWICE PER DAY
     Route: 048
     Dates: start: 20030101
  2. ZYRTEC [Suspect]
     Indication: ILL-DEFINED DISORDER
     Dosage: .8ML TWICE PER DAY
     Route: 048
     Dates: start: 20031110, end: 20031231

REACTIONS (4)
  - CONSTIPATION [None]
  - FAECES DISCOLOURED [None]
  - MEDICATION ERROR [None]
  - PHARMACEUTICAL PRODUCT COMPLAINT [None]
